FAERS Safety Report 6294165-7 (Version None)
Quarter: 2009Q3

REPORT INFORMATION
  Report Type: 
  Country: None (occurrence: None)
  Receive Date: 20090803
  Receipt Date: 20090122
  Transmission Date: 20100115
  Serious: No
  Sender: FDA-Public Use
  Company Number: A0764803A

PATIENT
  Age: 20 Year
  Sex: Male

DRUGS (2)
  1. NICORETTE WHITE ICE OTC 4MG [Suspect]
     Dates: start: 20090115
  2. NICORETTE (MINT) [Suspect]
     Dates: start: 20090115

REACTIONS (1)
  - TOOTH DISCOLOURATION [None]
